FAERS Safety Report 17466392 (Version 1)
Quarter: 2020Q1

REPORT INFORMATION
  Report Type: Spontaneous
  Country: IN (occurrence: IN)
  Receive Date: 20200227
  Receipt Date: 20200227
  Transmission Date: 20200409
  Serious: Yes (Other)
  Sender: FDA-Public Use
  Company Number: IN-ACS-001643

PATIENT
  Age: 14 Day
  Sex: Female

DRUGS (2)
  1. TIGECYCLINE. [Suspect]
     Active Substance: TIGECYCLINE
     Route: 065
  2. IMIPENEM AND CILASTATIN [Suspect]
     Active Substance: CILASTATIN SODIUM\IMIPENEM
     Route: 065

REACTIONS (1)
  - Methaemoglobinaemia [Recovering/Resolving]
